FAERS Safety Report 11313505 (Version 1)
Quarter: 2015Q3

REPORT INFORMATION
  Report Type: Spontaneous
  Country: US (occurrence: None)
  Receive Date: 20150724
  Receipt Date: 20150724
  Transmission Date: 20151125
  Serious: Yes (Hospitalization, Disabling)
  Sender: FDA-Public Use
  Company Number: None

PATIENT
  Age: 80 Year
  Sex: Male
  Weight: 63.5 kg

DRUGS (8)
  1. BABY ASA [Concomitant]
     Active Substance: ASPIRIN
  2. SIMVASTATIN. [Concomitant]
     Active Substance: SIMVASTATIN
  3. LASIX [Concomitant]
     Active Substance: FUROSEMIDE
  4. NITRO-DUR [Concomitant]
     Active Substance: NITROGLYCERIN
  5. KDUR [Concomitant]
  6. XARELTO [Suspect]
     Active Substance: RIVAROXABAN
     Indication: ATRIAL FIBRILLATION
     Dosage: DAILY, ONCE DAILY, TAKEN BY MOUTH
     Route: 048
     Dates: start: 20141113, end: 20150624
  7. COREG [Concomitant]
     Active Substance: CARVEDILOL
  8. PROCARDIA XL [Concomitant]
     Active Substance: NIFEDIPINE

REACTIONS (7)
  - Cardiac failure congestive [None]
  - International normalised ratio increased [None]
  - Haematocrit decreased [None]
  - Haemoglobin decreased [None]
  - Unresponsive to stimuli [None]
  - Myocardial infarction [None]
  - Activities of daily living impaired [None]

NARRATIVE: CASE EVENT DATE: 20150623
